FAERS Safety Report 15752573 (Version 1)
Quarter: 2018Q4

REPORT INFORMATION
  Report Type: Spontaneous
  Country: US (occurrence: US)
  Receive Date: 20181221
  Receipt Date: 20181221
  Transmission Date: 20190205
  Serious: No
  Sender: FDA-Public Use
  Company Number: US-009507513-1812USA004026

PATIENT
  Age: 31 Year
  Sex: Female
  Weight: 145.4 kg

DRUGS (2)
  1. NEXPLANON [Suspect]
     Active Substance: ETONOGESTREL
     Indication: CONTRACEPTION
     Dosage: 1 ROD EVERY 3 YEARS
     Route: 059
     Dates: start: 20150811
  2. NEXPLANON [Suspect]
     Active Substance: ETONOGESTREL
     Dosage: 1 ROD
     Route: 059
     Dates: start: 20180823

REACTIONS (5)
  - Weight increased [Unknown]
  - Incorrect product administration duration [Unknown]
  - Overdose [Unknown]
  - Complication associated with device [Unknown]
  - Complication of device removal [Unknown]

NARRATIVE: CASE EVENT DATE: 20180823
